FAERS Safety Report 22617056 (Version 2)
Quarter: 2023Q4

REPORT INFORMATION
  Report Type: Other
  Country: DE (occurrence: None)
  Receive Date: 20230620
  Receipt Date: 20231019
  Transmission Date: 20240109
  Serious: Yes (Hospitalization)
  Sender: FDA-Public Use
  Company Number: DE-ROCHE-3368326

PATIENT
  Age: 55 Year
  Sex: Female

DRUGS (9)
  1. TOCILIZUMAB [Suspect]
     Active Substance: TOCILIZUMAB
     Indication: Rheumatoid arthritis
     Route: 042
  2. URSODIOL [Concomitant]
     Active Substance: URSODIOL
  3. RAMIPRIL [Concomitant]
     Active Substance: RAMIPRIL
  4. SIMVASTATIN [Concomitant]
     Active Substance: SIMVASTATIN
  5. ALLOPURINOL [Concomitant]
     Active Substance: ALLOPURINOL
  6. METOPROLOL [Concomitant]
     Active Substance: METOPROLOL
  7. LANTUS [Concomitant]
     Active Substance: INSULIN GLARGINE
  8. INSULIN LISPRO [Concomitant]
     Active Substance: INSULIN LISPRO
  9. METFORMIN\SITAGLIPTIN [Concomitant]
     Active Substance: METFORMIN\SITAGLIPTIN

REACTIONS (1)
  - Pancreatic neoplasm [Recovered/Resolved]

NARRATIVE: CASE EVENT DATE: 20230109
